FAERS Safety Report 8417916-1 (Version None)
Quarter: 2012Q2

REPORT INFORMATION
  Report Type: 
  Country: None (occurrence: None)
  Receive Date: 20120601
  Receipt Date: 20120601
  Transmission Date: 20120825
  Serious: No
  Sender: FDA-Public Use
  Company Number: None

PATIENT
  Age: 50 Year
  Sex: Female
  Weight: 45.3597 kg

DRUGS (7)
  1. GABAPENTIN [Suspect]
     Indication: DEPRESSION
  2. GABAPENTIN [Suspect]
     Indication: PAIN
  3. SAVELLA [Suspect]
     Indication: DEPRESSION
  4. SAVELLA [Suspect]
     Indication: PAIN
  5. CELEXA [Suspect]
  6. LYRICA [Suspect]
     Indication: DEPRESSION
     Dosage: 20MG 1 X DAY
  7. LYRICA [Suspect]
     Indication: PAIN
     Dosage: 20MG 1 X DAY

REACTIONS (7)
  - FEELING JITTERY [None]
  - STUBBORNNESS [None]
  - NAUSEA [None]
  - INFLUENZA LIKE ILLNESS [None]
  - VISION BLURRED [None]
  - HEADACHE [None]
  - HEART RATE INCREASED [None]
